FAERS Safety Report 16736928 (Version 2)
Quarter: 2019Q3

REPORT INFORMATION
  Report Type: Spontaneous
  Country: US (occurrence: US)
  Receive Date: 20190823
  Receipt Date: 20190905
  Transmission Date: 20191005
  Serious: No
  Sender: FDA-Public Use
  Company Number: US-EISAI MEDICAL RESEARCH-EC-2019-060714

PATIENT
  Age: 39 Year
  Sex: Female
  Weight: 101 kg

DRUGS (1)
  1. BELVIQ [Suspect]
     Active Substance: LORCASERIN HYDROCHLORIDE
     Indication: OBESITY
     Route: 048
     Dates: start: 20190805, end: 20190813

REACTIONS (6)
  - Headache [Recovered/Resolved]
  - Fatigue [Recovering/Resolving]
  - Drug ineffective [Not Recovered/Not Resolved]
  - Sedation [Recovered/Resolved]
  - Vision blurred [Not Recovered/Not Resolved]
  - Dry mouth [Not Recovered/Not Resolved]

NARRATIVE: CASE EVENT DATE: 201908
